FAERS Safety Report 8229056-5 (Version None)
Quarter: 2012Q1

REPORT INFORMATION
  Report Type: 
  Country: None (occurrence: None)
  Receive Date: 20120322
  Receipt Date: 20120307
  Transmission Date: 20120608
  Serious: Yes (Hospitalization, Other)
  Sender: FDA-Public Use
  Company Number: US-ROCHE-1043021

PATIENT
  Sex: Male
  Weight: 64.54 kg

DRUGS (27)
  1. COPEGUS [Suspect]
     Indication: HEPATITIS C
     Route: 048
     Dates: start: 20110512, end: 20111123
  2. LORTAB [Concomitant]
     Indication: PAIN
     Dosage: AS NEEDED
     Route: 048
     Dates: start: 20110915
  3. ANALPRAM-HC [Concomitant]
     Indication: DIARRHOEA
  4. LEXAPRO [Concomitant]
     Route: 048
     Dates: start: 20111123
  5. VALTURNA [Concomitant]
     Indication: HYPERTENSION
     Dosage: 1 TABLET
     Route: 048
     Dates: start: 20110218
  6. BENEFIBER [Concomitant]
     Indication: DIARRHOEA
     Dosage: 2 TEASPOONS, AS NEEDED
     Route: 048
     Dates: start: 20110721
  7. AMBIEN [Concomitant]
     Indication: INSOMNIA
     Route: 048
     Dates: start: 20111123
  8. BLINDED RO 5466731 (HCV NS5B INHIBITOR) [Suspect]
     Indication: HEPATITIS C
     Route: 048
     Dates: start: 20110512, end: 20111123
  9. PHENERGAN [Concomitant]
     Indication: NAUSEA
     Dosage: EVERY 4 HOUR AS NEEDED
     Route: 048
     Dates: start: 20110608
  10. NUCYNTA [Concomitant]
     Route: 048
     Dates: start: 20111123
  11. NUCYNTA [Concomitant]
     Indication: ARTHRALGIA
     Dosage: 1 TABLET, 1 PILL EVERY 6 HOUR PRN
     Route: 048
     Dates: start: 20110426, end: 20110501
  12. TORADOL [Concomitant]
     Indication: PAIN
  13. LEXAPRO [Concomitant]
     Indication: DEPRESSION
     Dosage: 10 MG IN THE AM AND 20 MG IN THE PM
     Route: 048
     Dates: start: 20110218, end: 20111122
  14. KEFLEX [Concomitant]
     Dosage: 1 TABLET , EVERY 4 HOUR
     Route: 048
     Dates: start: 20110607, end: 20110610
  15. NUCYNTA [Concomitant]
     Dosage: EVERY 4 TO 6 HOUR
     Route: 048
     Dates: start: 20110603, end: 20110705
  16. NUCYNTA [Concomitant]
     Route: 048
     Dates: start: 20110706, end: 20111122
  17. TORADOL [Concomitant]
     Indication: HEADACHE
     Dosage: AS NEEDED
     Route: 048
     Dates: start: 20111123
  18. LIDOCAINE [Concomitant]
     Indication: PAIN
     Dosage: 1 TRANSDERM
     Dates: start: 20111123
  19. PEGINTERFERON ALFA-2A [Suspect]
     Indication: HEPATITIS C
     Route: 058
     Dates: start: 20110512, end: 20111123
  20. IMMUNOCAL [Concomitant]
     Indication: MEDICAL DIET
     Dosage: 1PKG
     Route: 048
     Dates: start: 20110218
  21. BENEFIBER [Concomitant]
     Dates: start: 20110721
  22. LORTAB [Concomitant]
     Indication: ARTHROSCOPY
     Dosage: 5/500 TABLET
     Route: 048
     Dates: start: 20110531, end: 20110601
  23. PHENERGAN [Concomitant]
     Indication: VOMITING
  24. ANALPRAM-HC [Concomitant]
     Indication: PROCTALGIA
     Dosage: 1 APPL, AS NEEDED
     Dates: start: 20110721
  25. LOMOTIL [Concomitant]
     Indication: DIARRHOEA
     Dosage: 2 TABLETS, AS NEEDED
     Route: 048
     Dates: start: 20110804
  26. ZOFRAN [Concomitant]
     Indication: NAUSEA
     Route: 042
     Dates: start: 20110608, end: 20110608
  27. ZOFRAN [Concomitant]
     Indication: VOMITING
     Dosage: AS NEEDED
     Route: 048
     Dates: start: 20111123

REACTIONS (2)
  - SUICIDAL IDEATION [None]
  - DEPRESSION [None]
